FAERS Safety Report 7786545-5 (Version None)
Quarter: 2011Q3

REPORT INFORMATION
  Report Type: 
  Country: None (occurrence: None)
  Receive Date: 20110929
  Receipt Date: 20110928
  Transmission Date: 20111222
  Serious: Yes (Life-Threatening, Hospitalization, Other)
  Sender: FDA-Public Use
  Company Number: GB-GLAXOSMITHKLINE-B0738555A

PATIENT
  Sex: Male

DRUGS (14)
  1. REQUIP XL [Suspect]
     Indication: PARKINSON'S DISEASE
     Dosage: 16MG PER DAY
     Route: 048
     Dates: start: 20070914
  2. FINASTERIDE [Concomitant]
     Dosage: 5MG PER DAY
     Route: 048
  3. RASAGILINE MESYLATE [Concomitant]
     Dosage: 1MG PER DAY
     Route: 048
  4. MOVIPREP [Concomitant]
     Dates: start: 20110801
  5. DALTEPARIN SODIUM [Concomitant]
  6. MIDODRINE HYDROCHLORIDE [Concomitant]
     Dosage: 10MG THREE TIMES PER DAY
  7. ACETAMINOPHEN [Concomitant]
     Dosage: 1G FOUR TIMES PER DAY
     Dates: start: 20110805
  8. CITALOPRAM HYDROBROMIDE [Concomitant]
     Dosage: 10MG PER DAY
     Route: 048
     Dates: end: 20110808
  9. OMEPRAZOLE [Concomitant]
     Dosage: 20MG PER DAY
  10. FRAGMIN [Concomitant]
     Route: 058
     Dates: start: 20110720
  11. PIPERACILLIN AND TAZOBACTAM [Concomitant]
     Dosage: 4.5G THREE TIMES PER DAY
     Route: 042
     Dates: start: 20110811, end: 20110816
  12. CALCEOS [Concomitant]
     Route: 048
  13. STALEVO 100 [Concomitant]
     Route: 048
  14. ALENDRONATE SODIUM [Concomitant]

REACTIONS (10)
  - NEUROLEPTIC MALIGNANT SYNDROME [None]
  - SEROTONIN SYNDROME [None]
  - HYPERHIDROSIS [None]
  - BLOOD CREATINE PHOSPHOKINASE INCREASED [None]
  - ORTHOSTATIC HYPOTENSION [None]
  - WITHDRAWAL SYNDROME [None]
  - MUSCLE RIGIDITY [None]
  - HYPERPYREXIA [None]
  - BODY TEMPERATURE INCREASED [None]
  - HYPERTONIA [None]
